FAERS Safety Report 5232089-4 (Version None)
Quarter: 2007Q1

REPORT INFORMATION
  Report Type: 
  Country: None (occurrence: None)
  Receive Date: 20070205
  Receipt Date: 20070126
  Transmission Date: 20070707
  Serious: Yes (Life-Threatening, Hospitalization, Other)
  Sender: FDA-Public Use
  Company Number: 2007-00188

PATIENT
  Age: 53 Year
  Sex: Male
  Weight: 105 kg

DRUGS (3)
  1. VELCADE [Suspect]
     Indication: RENAL CELL CARCINOMA STAGE UNSPECIFIED
     Dosage: 1.30 MG/M2; UNK; INTRAVENOUS
     Route: 042
     Dates: start: 20061002, end: 20070105
  2. BEVACIZUMAB (BEVACIZUMAB)  INJECTION [Suspect]
     Indication: RENAL CELL CARCINOMA STAGE UNSPECIFIED
     Dosage: 15.00 MG/KG, UNK; INTRAVENOUS
     Route: 042
     Dates: start: 20061002, end: 20061227
  3. INSULIN [Concomitant]

REACTIONS (3)
  - HYPOGLYCAEMIA [None]
  - HYPOTENSION [None]
  - SYNCOPE [None]
